FAERS Safety Report 5894371 (Version 2)
Quarter: 2014Q1

REPORT INFORMATION
  Report Type: Spontaneous
  Country: US (occurrence: None)
  Receive Date: 20050914
  Receipt Date: 20131219
  Transmission Date: 20141002
  Serious: Yes (Hospitalization, Other)
  Sender: FDA-Public Use
  Company Number: 163-20785-04090422

PATIENT
  Age: 69 Year
  Sex: Male

DRUGS (4)
  1. THALOMID [Suspect]
     Indication: PLASMA CELL MYELOMA
     Dosage: 100 MG, DAILY, ORAL
     Route: 048
     Dates: start: 20031023
  2. DECADRON [Concomitant]
  3. VITAMINS [Concomitant]
  4. OLPADRONATE (BIPHOSPHONATES) [Concomitant]

REACTIONS (5)
  - Bradycardia [None]
  - Syncope [None]
  - Hypertension [None]
  - Hypotension [None]
  - Neuropathy peripheral [None]
